FAERS Safety Report 9467211 (Version 1)
Quarter: 2013Q3

REPORT INFORMATION
  Report Type: Spontaneous
  Country: US (occurrence: US)
  Receive Date: 20130821
  Receipt Date: 20130821
  Transmission Date: 20140515
  Serious: Yes (Hospitalization, Other)
  Sender: FDA-Public Use
  Company Number: US-AMGEN-USASP2013057209

PATIENT
  Age: 71 Year
  Sex: Female
  Weight: 77.1 kg

DRUGS (7)
  1. ENBREL [Suspect]
     Indication: PRODUCT USED FOR UNKNOWN INDICATION
     Dosage: 50 MG, QWK
     Route: 058
  2. AMARYL [Concomitant]
     Dosage: 1 MG, UNK
  3. LIPITOR [Concomitant]
     Dosage: 10 MG, UNK
  4. ENALAPRIL [Concomitant]
     Dosage: 20 MG, UNK
  5. JINTELI [Concomitant]
     Dosage: 1 MG-5MCG
  6. CARVEDILOL [Concomitant]
     Dosage: 12.5 MG, UNK
  7. HYDROCORT                          /00028602/ [Concomitant]
     Dosage: 1 %, UNK

REACTIONS (4)
  - Staphylococcal infection [Unknown]
  - Myocardial infarction [Unknown]
  - Psoriasis [Unknown]
  - Alopecia [Unknown]
